FAERS Safety Report 9056800 (Version 3)
Quarter: 2013Q2

REPORT INFORMATION
  Report Type: Report from Study
  Country: CA (occurrence: CA)
  Receive Date: 20130201
  Receipt Date: 20130508
  Transmission Date: 20140414
  Serious: Yes (Life-Threatening, Hospitalization)
  Sender: FDA-Public Use
  Company Number: CA-PFIZER INC-2012124969

PATIENT
  Age: 77 Year
  Sex: Male
  Weight: 83.1 kg

DRUGS (14)
  1. PF-05212384 [Suspect]
     Indication: RECTAL NEOPLASM
     Dosage: 130 MG, WEEKLY (DAYS 2, 9, 16, 23)
     Route: 042
     Dates: start: 20120502, end: 20120516
  2. IRINOTECAN HCL [Suspect]
     Indication: RECTAL NEOPLASM
     Dosage: 338 MG, EVERY 2 WEEKS
     Route: 042
     Dates: start: 20120501, end: 20120515
  3. FLORINEF [Suspect]
     Indication: HYPOTENSION
     Dosage: UNK
     Route: 048
     Dates: start: 2012, end: 2012
  4. RABEPRAZOLE [Concomitant]
     Indication: GASTROOESOPHAGEAL REFLUX DISEASE
     Dosage: UNK
     Route: 048
     Dates: start: 201203
  5. SENOKOT [Concomitant]
     Indication: CONSTIPATION
     Dosage: UNK
     Dates: start: 201108
  6. LOVENOX [Concomitant]
     Indication: DEEP VEIN THROMBOSIS
     Dosage: UNK
     Dates: start: 201109
  7. HCTZ [Concomitant]
     Indication: HYPERTENSION
     Dosage: UNK
     Dates: start: 1998
  8. FOSINOPRIL [Concomitant]
     Indication: HYPERTENSION
     Dosage: UNK
     Dates: start: 1998
  9. ATORVASTATIN [Concomitant]
     Indication: BLOOD CHOLESTEROL
     Dosage: UNK
     Dates: start: 2000
  10. ALLOPURINOL [Concomitant]
     Indication: GOUT
     Dosage: UNK
     Dates: start: 2003
  11. MAGNESIUM SULFATE [Concomitant]
     Indication: HYPOMAGNESAEMIA
     Dosage: UNK
     Dates: start: 20120515, end: 20120515
  12. FLORASTOR [Concomitant]
     Indication: DIARRHOEA
     Dosage: UNK
     Dates: start: 20120512, end: 20120515
  13. LOMOTIL [Concomitant]
     Indication: DIARRHOEA
     Dosage: UNK
     Dates: start: 20120515
  14. IMODIUM [Concomitant]
     Indication: DIARRHOEA
     Dosage: UNK
     Dates: start: 20120512, end: 20120513

REACTIONS (3)
  - Febrile neutropenia [Recovered/Resolved]
  - Sepsis [Recovered/Resolved]
  - Hypokalaemia [Recovered/Resolved]
